FAERS Safety Report 5396048-3 (Version None)
Quarter: 2007Q3

REPORT INFORMATION
  Report Type: 
  Country: None (occurrence: None)
  Receive Date: 20070724
  Receipt Date: 20070713
  Transmission Date: 20080115
  Serious: Yes (Other)
  Sender: FDA-Public Use
  Company Number: US-PFIZER INC-2007059411

PATIENT
  Age: 42 Year
  Sex: Male

DRUGS (1)
  1. DILANTIN KAPSEAL [Suspect]

REACTIONS (1)
  - GRAND MAL CONVULSION [None]
